FAERS Safety Report 6579183-3 (Version None)
Quarter: 2010Q1

REPORT INFORMATION
  Report Type: 
  Country: None (occurrence: None)
  Receive Date: 20100212
  Receipt Date: 20100202
  Transmission Date: 20100710
  Serious: Yes (Other)
  Sender: FDA-Public Use
  Company Number: AU-JNJFOC-20100202103

PATIENT
  Sex: Female

DRUGS (1)
  1. REMICADE [Suspect]
     Indication: LICHEN PLANUS
     Route: 042

REACTIONS (2)
  - OFF LABEL USE [None]
  - SQUAMOUS CELL CARCINOMA [None]
